FAERS Safety Report 4340984-3 (Version None)
Quarter: 2004Q2

REPORT INFORMATION
  Report Type: 
  Country: None (occurrence: None)
  Receive Date: 20040413
  Receipt Date: 20040329
  Transmission Date: 20050107
  Serious: Yes (Life-Threatening)
  Sender: FDA-Public Use
  Company Number: 2004AP01672

PATIENT
  Age: 27 Year
  Sex: Male
  Weight: 55.9 kg

DRUGS (5)
  1. OMEPRAZOLE [Suspect]
     Indication: GASTRIC ULCER
     Dosage: 20 MG DAILY PO
     Route: 048
     Dates: start: 20040201, end: 20040301
  2. OMEPRAZOLE [Suspect]
     Indication: GASTRIC ULCER
     Dosage: 10 MG DAILY PO
     Route: 048
     Dates: start: 20040319, end: 20040324
  3. ALLOID [Concomitant]
  4. MALFA [Concomitant]
  5. MYONAL [Concomitant]

REACTIONS (3)
  - CARDIAC DISCOMFORT [None]
  - HYPERKALAEMIA [None]
  - HYPOAESTHESIA [None]
